FAERS Safety Report 21591136 (Version 2)
Quarter: 2022Q4

REPORT INFORMATION
  Report Type: Spontaneous
  Country: US (occurrence: US)
  Receive Date: 20221114
  Receipt Date: 20221121
  Transmission Date: 20230112
  Serious: Yes (Other)
  Sender: FDA-Public Use
  Company Number: US-TAKEDA-2022TUS082881

PATIENT
  Sex: Female
  Weight: 113 kg

DRUGS (1)
  1. VYVANSE [Suspect]
     Active Substance: LISDEXAMFETAMINE DIMESYLATE
     Indication: Attention deficit hyperactivity disorder
     Dosage: 20 GRAM
     Route: 065

REACTIONS (27)
  - Mental impairment [Unknown]
  - Drug intolerance [Unknown]
  - Heart rate increased [Unknown]
  - Hyperhidrosis [Unknown]
  - Feeling cold [Unknown]
  - Insomnia [Unknown]
  - Chest pain [Unknown]
  - Disturbance in attention [Unknown]
  - Dizziness [Unknown]
  - Dry mouth [Unknown]
  - Aggression [Unknown]
  - Feeling abnormal [Unknown]
  - Anxiety disorder [Unknown]
  - Feeding disorder [Unknown]
  - Nausea [Unknown]
  - Depressed mood [Unknown]
  - Weight increased [Unknown]
  - Weight decreased [Unknown]
  - Disease progression [Unknown]
  - Dyspnoea [Unknown]
  - Fatigue [Unknown]
  - Psychomotor hyperactivity [Unknown]
  - Product physical issue [Unknown]
  - Post-traumatic stress disorder [Unknown]
  - Product taste abnormal [Unknown]
  - Drug ineffective [Unknown]
  - Therapeutic product effect increased [Unknown]
